FAERS Safety Report 8101527-1 (Version None)
Quarter: 2012Q1

REPORT INFORMATION
  Report Type: 
  Country: None (occurrence: None)
  Receive Date: 20120129
  Receipt Date: 20111010
  Transmission Date: 20120608
  Serious: No
  Sender: FDA-Public Use
  Company Number: US-ABBOTT-11P-163-0863208-00

PATIENT
  Age: 21 Year
  Sex: Female

DRUGS (3)
  1. LIALDA [Concomitant]
     Indication: COLITIS ULCERATIVE
     Dosage: DAILY
  2. HUMIRA [Suspect]
     Indication: COLITIS ULCERATIVE
     Dates: start: 20110901
  3. PREDNISONE TAB [Concomitant]
     Indication: PRODUCT USED FOR UNKNOWN INDICATION
     Dosage: WILL START TO TAPER WITH NEXT HUMIRA DOSE 17 OCT, DECREASING BY 5 MG EVERY OTHER DAY

REACTIONS (1)
  - DIZZINESS [None]
